FAERS Safety Report 25374444 (Version 1)
Quarter: 2025Q2

REPORT INFORMATION
  Report Type: Spontaneous
  Country: US (occurrence: None)
  Receive Date: 20250528
  Receipt Date: 20250528
  Transmission Date: 20250717
  Serious: No
  Sender: FDA-CTU
  Company Number: None

PATIENT
  Age: 49 Year
  Sex: Female
  Weight: 92.25 kg

DRUGS (12)
  1. ZEPBOUND [Suspect]
     Active Substance: TIRZEPATIDE
  2. ATENOLOL [Concomitant]
     Active Substance: ATENOLOL
  3. YASMIN [Concomitant]
     Active Substance: DROSPIRENONE\ETHINYL ESTRADIOL
  4. BOTOX [Concomitant]
     Active Substance: ONABOTULINUMTOXINA
  5. EMGALITY [Concomitant]
     Active Substance: GALCANEZUMAB-GNLM
  6. UBRELVY [Concomitant]
     Active Substance: UBROGEPANT
  7. POTASSIUM CHLORIDE [Concomitant]
     Active Substance: POTASSIUM CHLORIDE
  8. EXCEDRIN TENSION HEADACHE [Concomitant]
     Active Substance: ACETAMINOPHEN\CAFFEINE
  9. IBUPROFEN [Concomitant]
     Active Substance: IBUPROFEN
  10. VITAMIN D3 [Concomitant]
     Active Substance: CHOLECALCIFEROL
  11. MAGNESIUM CITRATE [Concomitant]
     Active Substance: MAGNESIUM CITRATE
  12. Colace Stool Softener [Concomitant]

REACTIONS (8)
  - Ventricular extrasystoles [None]
  - Blood potassium decreased [None]
  - Extrasystoles [None]
  - Supraventricular tachycardia [None]
  - Malaise [None]
  - Nausea [None]
  - Constipation [None]
  - Hot flush [None]

NARRATIVE: CASE EVENT DATE: 20250108
